FAERS Safety Report 15594400 (Version 1)
Quarter: 2018Q4

REPORT INFORMATION
  Report Type: Spontaneous
  Country: IN (occurrence: IN)
  Receive Date: 20181107
  Receipt Date: 20181107
  Transmission Date: 20190205
  Serious: Yes (Hospitalization)
  Sender: FDA-Public Use
  Company Number: IN-ASSERTIO THERAPEUTICS, INC.-IN-2018DEP001866

PATIENT
  Age: 50 Year
  Sex: Male

DRUGS (1)
  1. DICLOFENAC POTASSIUM. [Suspect]
     Active Substance: DICLOFENAC POTASSIUM
     Indication: ARTHRALGIA
     Dosage: SINGLE DOSE
     Route: 030

REACTIONS (2)
  - Rhabdomyolysis [Recovered/Resolved]
  - Hypovolaemic shock [Recovered/Resolved]
